FAERS Safety Report 20216429 (Version 1)
Quarter: 2021Q4

REPORT INFORMATION
  Report Type: Spontaneous
  Country: US (occurrence: US)
  Receive Date: 20211222
  Receipt Date: 20211222
  Transmission Date: 20220303
  Serious: Yes (Other)
  Sender: FDA-Public Use
  Company Number: US-MYLANLABS-2021M1094547

PATIENT
  Age: 35 Year
  Sex: Male

DRUGS (14)
  1. ETOMIDATE [Suspect]
     Active Substance: ETOMIDATE
     Indication: Induction of anaesthesia
     Dosage: 20 MILLIGRAM
     Route: 042
  2. ROCURONIUM [Suspect]
     Active Substance: ROCURONIUM BROMIDE
     Indication: Induction of anaesthesia
     Dosage: 100 MILLIGRAM
     Route: 042
  3. SODIUM CHLORIDE [Concomitant]
     Active Substance: SODIUM CHLORIDE
     Indication: Product used for unknown indication
     Dosage: 200 MILLILITER
     Route: 040
  4. NALOXONE [Concomitant]
     Active Substance: NALOXONE
     Indication: Apnoea
     Dosage: 2 MILLIGRAM
     Route: 042
  5. NALOXONE [Concomitant]
     Active Substance: NALOXONE
     Indication: Agitation
     Dosage: 0.4 MILLIGRAM
     Route: 042
  6. NALOXONE [Concomitant]
     Active Substance: NALOXONE
     Indication: Respiratory rate decreased
  7. NALOXONE [Concomitant]
     Active Substance: NALOXONE
     Indication: Haemodynamic instability
  8. KETAMINE [Concomitant]
     Active Substance: KETAMINE
     Indication: Agitation
     Dosage: 50 MILLIGRAM
     Route: 040
  9. KETAMINE [Concomitant]
     Active Substance: KETAMINE
     Indication: Hypotonia
     Dosage: 100 MILLIGRAM
     Route: 040
  10. KETAMINE [Concomitant]
     Active Substance: KETAMINE
     Indication: Haemodynamic instability
  11. KETAMINE [Concomitant]
     Active Substance: KETAMINE
     Indication: Hypotonia
  12. NOREPINEPHRINE [Concomitant]
     Active Substance: NOREPINEPHRINE
     Indication: Hypotension
     Dosage: INITIAL DOSAGE NOT STATED
     Route: 042
  13. NOREPINEPHRINE [Concomitant]
     Active Substance: NOREPINEPHRINE
     Dosage: 50 MICROGRAM, QMINUTE
     Route: 042
  14. EPINEPHRINE [Concomitant]
     Active Substance: EPINEPHRINE
     Indication: Hypotension
     Dosage: UNK
     Route: 042

REACTIONS (7)
  - Agitation [Recovering/Resolving]
  - Pain [Recovering/Resolving]
  - Screaming [Recovering/Resolving]
  - Grimacing [Recovering/Resolving]
  - Aggression [Recovering/Resolving]
  - Muscle rigidity [Recovering/Resolving]
  - Muscle contractions involuntary [Recovering/Resolving]
